FAERS Safety Report 5920578-6 (Version None)
Quarter: 2008Q4

REPORT INFORMATION
  Report Type: 
  Country: None (occurrence: None)
  Receive Date: 20081016
  Receipt Date: 20081006
  Transmission Date: 20090506
  Serious: Yes (Hospitalization)
  Sender: FDA-Public Use
  Company Number: PHHO2007MY08208

PATIENT
  Sex: Male

DRUGS (7)
  1. LAMIVUDINE [Suspect]
     Indication: HEPATITIS B
     Dosage: DOUBLE BLIND
     Route: 048
     Dates: start: 20060111
  2. TYZEKA [Suspect]
     Indication: HEPATITIS B
     Dosage: DOUBLE BLIND
     Route: 048
     Dates: start: 20060111
  3. BLINDED NO TREATMENT RECEIVED NOMED [Suspect]
     Indication: HEPATITIS B
     Dosage: DOUBLE BLIND
     Route: 048
     Dates: start: 20060111
  4. LACTULOSE [Concomitant]
     Indication: LAXATIVE SUPPORTIVE CARE
     Dates: start: 20050912
  5. LANSOPRAZOLE [Concomitant]
     Dates: start: 20060210
  6. BETAMETHASONE [Concomitant]
     Indication: PRURITUS
     Dates: start: 20061017
  7. CHLORPHENIRAMINE MALEATE [Concomitant]
     Indication: PRURITUS
     Dates: start: 20061212

REACTIONS (3)
  - ASCITES [None]
  - PENILE SWELLING [None]
  - WEIGHT INCREASED [None]
